FAERS Safety Report 5726478-9 (Version None)
Quarter: 2008Q2

REPORT INFORMATION
  Report Type: 
  Country: None (occurrence: None)
  Receive Date: 20080502
  Receipt Date: 20080424
  Transmission Date: 20081010
  Serious: Yes (Other)
  Sender: FDA-Public Use
  Company Number: US-WYE-H03800508

PATIENT
  Sex: Female

DRUGS (6)
  1. EFFEXOR XR [Suspect]
     Indication: DEPRESSION
     Dosage: 75 MG, FREQUENCY NOT SPECIFIED
     Dates: start: 19990101
  2. EFFEXOR XR [Suspect]
     Dates: end: 20060101
  3. EFFEXOR XR [Suspect]
     Dosage: ^TRIED TO TAKE ONLY HALF MY DOSE^
     Dates: start: 20060101, end: 20060101
  4. EFFEXOR XR [Suspect]
     Dosage: UNKNOWN
     Dates: start: 20060101, end: 20070101
  5. EFFEXOR XR [Suspect]
     Dates: start: 20070101
  6. ZOLOFT [Suspect]
     Dosage: TOOK OVER HALF OF THE ZOLOFT (A BOTTLE OF 30) IN AN OVERDOSE
     Route: 048
     Dates: start: 20080330, end: 20080330

REACTIONS (18)
  - APATHY [None]
  - CRYING [None]
  - DRUG INEFFECTIVE [None]
  - DRUG WITHDRAWAL SYNDROME [None]
  - FEELING ABNORMAL [None]
  - FLAT AFFECT [None]
  - GAMBLING [None]
  - INAPPROPRIATE SCHEDULE OF DRUG ADMINISTRATION [None]
  - INTENTIONAL OVERDOSE [None]
  - NIGHT SWEATS [None]
  - NIGHTMARE [None]
  - PANIC ATTACK [None]
  - PERSONALITY CHANGE [None]
  - SELF-INJURIOUS IDEATION [None]
  - SOMNOLENCE [None]
  - SUICIDAL IDEATION [None]
  - SUICIDE ATTEMPT [None]
  - THINKING ABNORMAL [None]
